FAERS Safety Report 25396319 (Version 1)
Quarter: 2025Q2

REPORT INFORMATION
  Report Type: Spontaneous
  Country: AU (occurrence: None)
  Receive Date: 20250603
  Receipt Date: 20250603
  Transmission Date: 20250716
  Serious: Yes (Other)
  Sender: FDA-CTU
  Company Number: None

PATIENT
  Age: 29 Year
  Sex: Female
  Weight: 80 kg

DRUGS (10)
  1. PAXIL [Suspect]
     Active Substance: PAROXETINE HYDROCHLORIDE
     Indication: Panic attack
     Route: 048
  2. INTUNIV [Concomitant]
     Active Substance: GUANFACINE HYDROCHLORIDE
  3. PAROXETINE [Concomitant]
     Active Substance: PAROXETINE
  4. PROPRANOLOL [Concomitant]
     Active Substance: PROPRANOLOL HYDROCHLORIDE
  5. PROPRANOLOL [Concomitant]
     Active Substance: PROPRANOLOL HYDROCHLORIDE
  6. DIAZEPAM [Concomitant]
     Active Substance: DIAZEPAM
  7. TEMAZEPAM [Concomitant]
     Active Substance: TEMAZEPAM
  8. MAGNESIUM [Concomitant]
     Active Substance: MAGNESIUM
  9. FISH OIL [Concomitant]
     Active Substance: FISH OIL
  10. ZINC [Concomitant]
     Active Substance: ZINC

REACTIONS (20)
  - Panic attack [None]
  - Hypoaesthesia [None]
  - Hypoaesthesia [None]
  - Post-traumatic stress disorder [None]
  - Withdrawal syndrome [None]
  - Diarrhoea [None]
  - Dehydration [None]
  - Depersonalisation/derealisation disorder [None]
  - Derealisation [None]
  - Hyperacusis [None]
  - Photophobia [None]
  - Akathisia [None]
  - Sensory disturbance [None]
  - Pruritus [None]
  - Skin burning sensation [None]
  - Temperature intolerance [None]
  - Hyperaesthesia [None]
  - Hot flush [None]
  - Abdominal pain upper [None]
  - Influenza [None]

NARRATIVE: CASE EVENT DATE: 20170601
